FAERS Safety Report 8329949-4 (Version None)
Quarter: 2012Q2

REPORT INFORMATION
  Report Type: 
  Country: None (occurrence: None)
  Receive Date: 20120502
  Receipt Date: 20120418
  Transmission Date: 20120825
  Serious: Yes (Hospitalization)
  Sender: FDA-Public Use
  Company Number: US-ENDO PHARMACEUTICALS INC.-OPCR20120278

PATIENT
  Sex: Female
  Weight: 70.37 kg

DRUGS (1)
  1. OPANA ER [Suspect]
     Indication: PAIN
     Route: 048
     Dates: start: 20120407

REACTIONS (3)
  - MIGRAINE [None]
  - MYOCARDIAL INFARCTION [None]
  - DRUG INEFFECTIVE [None]
